FAERS Safety Report 11156395 (Version 1)
Quarter: 2015Q2

REPORT INFORMATION
  Report Type: Report from Study
  Country: US (occurrence: US)
  Receive Date: 20150602
  Receipt Date: 20150602
  Transmission Date: 20150821
  Serious: No
  Sender: FDA-Public Use
  Company Number: US-TEVA-551919USA

PATIENT
  Age: 21 Year
  Sex: Female

DRUGS (2)
  1. SEASONIQUE [Concomitant]
     Active Substance: ETHINYL ESTRADIOL\LEVONORGESTREL
  2. CLARAVIS [Suspect]
     Active Substance: ISOTRETINOIN
     Route: 048
     Dates: start: 2015, end: 2015

REACTIONS (1)
  - Depression [Recovered/Resolved]

NARRATIVE: CASE EVENT DATE: 20150225
